FAERS Safety Report 11510783 (Version 4)
Quarter: 2015Q4

REPORT INFORMATION
  Report Type: Spontaneous
  Country: JP (occurrence: JP)
  Receive Date: 20150915
  Receipt Date: 20151102
  Transmission Date: 20160304
  Serious: Yes (Other)
  Sender: FDA-Public Use
  Company Number: JP-TAKEDA-2015MPI006062

PATIENT

DRUGS (17)
  1. METLIGINE [Concomitant]
     Active Substance: MIDODRINE HYDROCHLORIDE
     Dosage: 1 MG, BID
     Route: 048
  2. FAMOTIDINE. [Concomitant]
     Active Substance: FAMOTIDINE
     Dosage: 20 MG, QD
     Route: 048
  3. MIYA-BM [Concomitant]
     Active Substance: CLOSTRIDIUM BUTYRICUM SPORES STRAIN M-55
     Dosage: 1 G, TID
     Route: 048
  4. BAKTAR [Concomitant]
     Active Substance: SULFAMETHOXAZOLE\TRIMETHOPRIM
     Dosage: UNK UNK, QD
     Route: 048
  5. ITRIZOLE [Concomitant]
     Active Substance: ITRACONAZOLE
     Dosage: 200 MG, QD
     Route: 048
  6. QUETIAPINE [Concomitant]
     Active Substance: QUETIAPINE
     Dosage: 25 MG, QD
     Route: 048
  7. HEPARIN SODIUM. [Concomitant]
     Active Substance: HEPARIN SODIUM
     Dosage: UNK
     Route: 042
  8. VELCADE [Suspect]
     Active Substance: BORTEZOMIB
     Indication: WALDENSTROM^S MACROGLOBULINAEMIA
     Dosage: 1.8 MG, 1/WEEK
     Route: 058
     Dates: start: 20150826, end: 20150826
  9. LOPEMIN                            /00384302/ [Concomitant]
     Active Substance: LOPERAMIDE HYDROCHLORIDE
     Dosage: 2 MG, BID
     Route: 048
  10. TAMSULOSIN [Concomitant]
     Active Substance: TAMSULOSIN
     Dosage: 0.2 MG, QD
     Route: 048
  11. DEXAMETHASONE ACETATE [Concomitant]
     Active Substance: DEXAMETHASONE ACETATE
     Indication: WALDENSTROM^S MACROGLOBULINAEMIA
     Dosage: 10 MG, 2/WEEK
     Route: 042
     Dates: start: 20150826, end: 20150903
  12. SILECE [Concomitant]
     Active Substance: FLUNITRAZEPAM
     Dosage: 1 MG, QD
     Route: 048
  13. LYRICA [Concomitant]
     Active Substance: PREGABALIN
     Indication: NEUROPATHY PERIPHERAL
     Dosage: 225 MG, QD
     Route: 048
  14. ZOVIRAX [Concomitant]
     Active Substance: ACYCLOVIR
     Dosage: 200 MG, QD
     Route: 048
  15. VELCADE [Suspect]
     Active Substance: BORTEZOMIB
     Dosage: 1.8 MG, 1/WEEK
     Route: 058
     Dates: start: 20150902, end: 20150902
  16. PANCREATIN [Concomitant]
     Active Substance: PANCRELIPASE
     Dosage: 1 G, TID
     Route: 048
  17. ADSORBIN [Concomitant]
     Active Substance: ALUMINUM SILICATE
     Dosage: 1 G, TID
     Route: 048

REACTIONS (2)
  - Product use issue [Unknown]
  - Altered state of consciousness [Recovered/Resolved]

NARRATIVE: CASE EVENT DATE: 20150826
